FAERS Safety Report 16877942 (Version 1)
Quarter: 2019Q4

REPORT INFORMATION
  Report Type: Spontaneous
  Country: CA (occurrence: CA)
  Receive Date: 20191002
  Receipt Date: 20191002
  Transmission Date: 20200122
  Serious: Yes (Other)
  Sender: FDA-Public Use
  Company Number: CA-SAMSUNG BIOEPIS-SB-2019-28907

PATIENT
  Age: 22 Year
  Sex: Female

DRUGS (5)
  1. IMURAN [Concomitant]
     Active Substance: AZATHIOPRINE
     Indication: PRODUCT USED FOR UNKNOWN INDICATION
     Route: 048
  2. PREDNISONE. [Concomitant]
     Active Substance: PREDNISONE
     Indication: PRODUCT USED FOR UNKNOWN INDICATION
     Route: 048
  3. PREDNISONE. [Concomitant]
     Active Substance: PREDNISONE
     Route: 048
  4. INFLIXIMAB [Suspect]
     Active Substance: INFLIXIMAB
     Indication: CROHN^S DISEASE
     Route: 042
  5. METHYLPREDNISOLONE. [Concomitant]
     Active Substance: METHYLPREDNISOLONE
     Indication: PRODUCT USED FOR UNKNOWN INDICATION
     Route: 042

REACTIONS (15)
  - Oropharyngeal pain [Unknown]
  - Productive cough [Unknown]
  - Abdominal pain [Unknown]
  - Arthralgia [Unknown]
  - Swelling face [Unknown]
  - Back pain [Unknown]
  - Fistula [Unknown]
  - Hypoaesthesia [Unknown]
  - Scar [Unknown]
  - Bone pain [Unknown]
  - Condition aggravated [Unknown]
  - Intestinal perforation [Unknown]
  - Clostridium difficile infection [Unknown]
  - Inflammation [Unknown]
  - Colitis [Unknown]
